FAERS Safety Report 7821972-9 (Version None)
Quarter: 2011Q4

REPORT INFORMATION
  Report Type: 
  Country: None (occurrence: None)
  Receive Date: 20111018
  Receipt Date: 20110527
  Transmission Date: 20120403
  Serious: No
  Sender: FDA-Public Use
  Company Number: US-ASTRAZENECA-2011SE13569

PATIENT
  Age: 55 Year
  Sex: Male

DRUGS (2)
  1. CRESTOR [Suspect]
     Route: 048
  2. SYMBICORT [Suspect]
     Route: 055

REACTIONS (9)
  - NASOPHARYNGITIS [None]
  - PULMONARY CONGESTION [None]
  - CHRONIC OBSTRUCTIVE PULMONARY DISEASE [None]
  - PANIC ATTACK [None]
  - BLOOD TRIGLYCERIDES INCREASED [None]
  - DRUG DOSE OMISSION [None]
  - MALAISE [None]
  - DYSPNOEA [None]
  - BRONCHITIS CHRONIC [None]
